FAERS Safety Report 8779040 (Version 1)
Quarter: 2012Q4

REPORT INFORMATION
  Report Type: 
  Country: CN (occurrence: CN)
  Receive Date: 20120912
  Receipt Date: 20120912
  Transmission Date: 20130627
  Serious: Yes (Hospitalization)
  Sender: FDA-Public Use
  Company Number: CN-PFIZER INC-2012222861

PATIENT
  Age: 59 Year
  Sex: Female

DRUGS (2)
  1. CORDARONE [Suspect]
     Indication: ARRHYTHMIA
     Dosage: 1 DF, 1x/day
     Route: 048
     Dates: start: 20101004, end: 20101204
  2. CORDARONE [Suspect]
     Indication: ATRIAL FIBRILLATION

REACTIONS (6)
  - Thyroid function test abnormal [Recovering/Resolving]
  - Thyroxine increased [Unknown]
  - Blood thyroid stimulating hormone decreased [Unknown]
  - Palpitations [Unknown]
  - Chest discomfort [Unknown]
  - Thyroid neoplasm [Unknown]
